FAERS Safety Report 5927943-1 (Version None)
Quarter: 2008Q4

REPORT INFORMATION
  Report Type: 
  Country: None (occurrence: None)
  Receive Date: 20081023
  Receipt Date: 20081009
  Transmission Date: 20090506
  Serious: Yes (Hospitalization)
  Sender: FDA-Public Use
  Company Number: DE-GENENTECH-270006

PATIENT
  Sex: Female

DRUGS (3)
  1. AVASTIN [Suspect]
     Indication: BREAST CANCER METASTATIC
     Dosage: 394 MG, DAYS 1+15
     Route: 042
     Dates: start: 20071115, end: 20071129
  2. AVASTIN [Suspect]
     Dosage: 394 MG, DAYS 1+15
     Route: 042
     Dates: start: 20080131, end: 20080925
  3. CAPECITABINE [Concomitant]
     Indication: DRUG USE FOR UNKNOWN INDICATION
     Dosage: UNK
     Dates: start: 20080603

REACTIONS (1)
  - OPTIC ISCHAEMIC NEUROPATHY [None]
